FAERS Safety Report 25722729 (Version 1)
Quarter: 2025Q3

REPORT INFORMATION
  Report Type: Spontaneous
  Country: EU (occurrence: EU)
  Receive Date: 20250825
  Receipt Date: 20250825
  Transmission Date: 20251020
  Serious: Yes (Hospitalization)
  Sender: MYLAN
  Company Number: None

PATIENT
  Age: 78 Year
  Sex: Female

DRUGS (28)
  1. METFORMIN [Suspect]
     Active Substance: METFORMIN HYDROCHLORIDE
     Indication: Product used for unknown indication
     Dates: start: 20250714, end: 20250714
  2. METFORMIN [Suspect]
     Active Substance: METFORMIN HYDROCHLORIDE
     Route: 048
     Dates: start: 20250714, end: 20250714
  3. METFORMIN [Suspect]
     Active Substance: METFORMIN HYDROCHLORIDE
     Route: 048
     Dates: start: 20250714, end: 20250714
  4. METFORMIN [Suspect]
     Active Substance: METFORMIN HYDROCHLORIDE
     Dates: start: 20250714, end: 20250714
  5. FLECAINIDE ACETATE [Suspect]
     Active Substance: FLECAINIDE ACETATE
     Indication: Product used for unknown indication
     Dates: start: 20250714, end: 20250714
  6. FLECAINIDE ACETATE [Suspect]
     Active Substance: FLECAINIDE ACETATE
     Route: 048
     Dates: start: 20250714, end: 20250714
  7. FLECAINIDE ACETATE [Suspect]
     Active Substance: FLECAINIDE ACETATE
     Route: 048
     Dates: start: 20250714, end: 20250714
  8. FLECAINIDE ACETATE [Suspect]
     Active Substance: FLECAINIDE ACETATE
     Dates: start: 20250714, end: 20250714
  9. FLUOXETINE [Suspect]
     Active Substance: FLUOXETINE HYDROCHLORIDE
     Indication: Product used for unknown indication
     Dates: start: 20250714, end: 20250714
  10. FLUOXETINE [Suspect]
     Active Substance: FLUOXETINE HYDROCHLORIDE
     Route: 048
     Dates: start: 20250714, end: 20250714
  11. FLUOXETINE [Suspect]
     Active Substance: FLUOXETINE HYDROCHLORIDE
     Route: 048
     Dates: start: 20250714, end: 20250714
  12. FLUOXETINE [Suspect]
     Active Substance: FLUOXETINE HYDROCHLORIDE
     Dates: start: 20250714, end: 20250714
  13. RISPERIDONE [Suspect]
     Active Substance: RISPERIDONE
     Indication: Product used for unknown indication
     Dates: start: 20250714, end: 20250714
  14. RISPERIDONE [Suspect]
     Active Substance: RISPERIDONE
     Route: 048
     Dates: start: 20250714, end: 20250714
  15. RISPERIDONE [Suspect]
     Active Substance: RISPERIDONE
     Route: 048
     Dates: start: 20250714, end: 20250714
  16. RISPERIDONE [Suspect]
     Active Substance: RISPERIDONE
     Dates: start: 20250714, end: 20250714
  17. RAMIPRIL [Suspect]
     Active Substance: RAMIPRIL
     Indication: Product used for unknown indication
     Dates: start: 20250714, end: 20250714
  18. RAMIPRIL [Suspect]
     Active Substance: RAMIPRIL
     Route: 048
     Dates: start: 20250714, end: 20250714
  19. RAMIPRIL [Suspect]
     Active Substance: RAMIPRIL
     Route: 048
     Dates: start: 20250714, end: 20250714
  20. RAMIPRIL [Suspect]
     Active Substance: RAMIPRIL
     Dates: start: 20250714, end: 20250714
  21. OXAZEPAM [Suspect]
     Active Substance: OXAZEPAM
     Indication: Product used for unknown indication
     Dates: start: 20250714, end: 20250714
  22. OXAZEPAM [Suspect]
     Active Substance: OXAZEPAM
     Route: 048
     Dates: start: 20250714, end: 20250714
  23. OXAZEPAM [Suspect]
     Active Substance: OXAZEPAM
     Route: 048
     Dates: start: 20250714, end: 20250714
  24. OXAZEPAM [Suspect]
     Active Substance: OXAZEPAM
     Dates: start: 20250714, end: 20250714
  25. TROPATEPINE HYDROCHLORIDE [Suspect]
     Active Substance: TROPATEPINE HYDROCHLORIDE
     Indication: Product used for unknown indication
     Dates: start: 20250714, end: 20250714
  26. TROPATEPINE HYDROCHLORIDE [Suspect]
     Active Substance: TROPATEPINE HYDROCHLORIDE
     Route: 048
     Dates: start: 20250714, end: 20250714
  27. TROPATEPINE HYDROCHLORIDE [Suspect]
     Active Substance: TROPATEPINE HYDROCHLORIDE
     Route: 048
     Dates: start: 20250714, end: 20250714
  28. TROPATEPINE HYDROCHLORIDE [Suspect]
     Active Substance: TROPATEPINE HYDROCHLORIDE
     Dates: start: 20250714, end: 20250714

REACTIONS (3)
  - Somnolence [Recovered/Resolved]
  - Hypotension [Recovered/Resolved]
  - Wrong patient received product [Recovered/Resolved]

NARRATIVE: CASE EVENT DATE: 20250714
